FAERS Safety Report 12489740 (Version 3)
Quarter: 2016Q3

REPORT INFORMATION
  Report Type: Spontaneous
  Country: US (occurrence: US)
  Receive Date: 20160622
  Receipt Date: 20160817
  Transmission Date: 20161109
  Serious: No
  Sender: FDA-Public Use
  Company Number: US-GLAXOSMITHKLINE-US2016GSK087935

PATIENT
  Sex: Female

DRUGS (4)
  1. WARFARIN [Concomitant]
     Active Substance: WARFARIN
  2. FLOLAN [Suspect]
     Active Substance: EPOPROSTENOL SODIUM
     Dosage: 23 DF, CO
     Route: 042
  3. FLOLAN [Suspect]
     Active Substance: EPOPROSTENOL SODIUM
     Indication: PULMONARY HYPERTENSION
     Dosage: 15 NG/KG/MIN, CO
     Route: 042
     Dates: start: 20160428
  4. FLOLAN DILUENT SOLUTION FOR INJECTION [Suspect]
     Active Substance: GLYCINE\MANNITOL\SODIUM CHLORIDE
     Indication: PULMONARY HYPERTENSION

REACTIONS (9)
  - Erythema [Unknown]
  - Pain in extremity [Unknown]
  - Rash macular [Unknown]
  - Pruritus [Unknown]
  - Rash [Unknown]
  - Nausea [Unknown]
  - Flushing [Unknown]
  - Diarrhoea [Unknown]
  - Arthralgia [Unknown]
